FAERS Safety Report 15311179 (Version 6)
Quarter: 2020Q3

REPORT INFORMATION
  Report Type: Report from Study
  Country: FI (occurrence: FI)
  Receive Date: 20180823
  Receipt Date: 20200814
  Transmission Date: 20201102
  Serious: Yes (Hospitalization)
  Sender: FDA-Public Use
  Company Number: FI-SHIRE-FI201819038

PATIENT

DRUGS (17)
  1. TEDUGLUTIDE [Suspect]
     Active Substance: TEDUGLUTIDE
     Dosage: UNK
     Route: 058
     Dates: start: 20171024, end: 20180417
  2. TEDUGLUTIDE [Suspect]
     Active Substance: TEDUGLUTIDE
     Indication: SHORT-BOWEL SYNDROME
     Dosage: UNK
     Route: 058
     Dates: start: 20171024, end: 20180417
  3. TEDUGLUTIDE [Suspect]
     Active Substance: TEDUGLUTIDE
     Dosage: UNK
     Route: 058
     Dates: start: 20171024, end: 20180417
  4. DEVISOL [Concomitant]
     Indication: SHORT-BOWEL SYNDROME
  5. TEDUGLUTIDE [Suspect]
     Active Substance: TEDUGLUTIDE
     Indication: SHORT-BOWEL SYNDROME
     Dosage: UNK
     Route: 058
     Dates: start: 20171024, end: 20180417
  6. TEDUGLUTIDE [Suspect]
     Active Substance: TEDUGLUTIDE
     Dosage: UNK
     Route: 058
     Dates: start: 20171024, end: 20180417
  7. TEDUGLUTIDE [Suspect]
     Active Substance: TEDUGLUTIDE
     Dosage: UNK
     Route: 058
     Dates: start: 20171024, end: 20180417
  8. TEDUGLUTIDE [Suspect]
     Active Substance: TEDUGLUTIDE
     Dosage: UNK
     Route: 058
     Dates: start: 20171024, end: 20180417
  9. MULTIVITAMIN [Concomitant]
     Active Substance: VITAMINS
     Indication: SHORT-BOWEL SYNDROME
  10. TEDUGLUTIDE [Suspect]
     Active Substance: TEDUGLUTIDE
     Indication: SHORT-BOWEL SYNDROME
     Dosage: UNK
     Route: 058
     Dates: start: 20171024, end: 20180417
  11. TEDUGLUTIDE [Suspect]
     Active Substance: TEDUGLUTIDE
     Indication: SHORT-BOWEL SYNDROME
     Dosage: UNK
     Route: 058
     Dates: start: 20171024, end: 20180417
  12. TEDUGLUTIDE [Suspect]
     Active Substance: TEDUGLUTIDE
     Dosage: UNK
     Route: 058
     Dates: start: 20171024, end: 20180417
  13. LOPEX [Concomitant]
     Indication: SHORT-BOWEL SYNDROME
  14. TEDUGLUTIDE [Suspect]
     Active Substance: TEDUGLUTIDE
     Dosage: UNK
     Route: 058
     Dates: start: 20171024, end: 20180417
  15. LOSEC [Concomitant]
     Active Substance: OMEPRAZOLE
     Indication: SHORT-BOWEL SYNDROME
  16. TEDUGLUTIDE [Suspect]
     Active Substance: TEDUGLUTIDE
     Dosage: UNK
     Route: 058
     Dates: start: 20171024, end: 20180417
  17. BETOLVEX [CYANOCOBALAMIN] [Concomitant]
     Active Substance: CYANOCOBALAMIN
     Indication: SHORT-BOWEL SYNDROME

REACTIONS (1)
  - Metabolic acidosis [Recovered/Resolved]

NARRATIVE: CASE EVENT DATE: 20180507
